FAERS Safety Report 23320304 (Version 1)
Quarter: 2023Q4

REPORT INFORMATION
  Report Type: Spontaneous
  Country: TR (occurrence: TR)
  Receive Date: 20231220
  Receipt Date: 20231220
  Transmission Date: 20240110
  Serious: Yes (Life-Threatening, Hospitalization)
  Sender: FDA-Public Use
  Company Number: TR-BAYER-2023A180329

PATIENT
  Age: 36 Year
  Sex: Male

DRUGS (8)
  1. MOXIFLOXACIN [Suspect]
     Active Substance: MOXIFLOXACIN
     Indication: Sepsis
     Dosage: 400 MG
  2. PIPERACILLIN SODIUM\TAZOBACTAM SODIUM [Concomitant]
     Active Substance: PIPERACILLIN SODIUM\TAZOBACTAM SODIUM
  3. TEICOPLANIN [Concomitant]
     Active Substance: TEICOPLANIN
  4. MEROPENEM [Concomitant]
     Active Substance: MEROPENEM
  5. MICAFUNGIN [Concomitant]
     Active Substance: MICAFUNGIN SODIUM
  6. CEFOPERAZONE\SULBACTAM [Concomitant]
     Active Substance: CEFOPERAZONE\SULBACTAM
  7. COLISTIN [Concomitant]
     Active Substance: COLISTIN
  8. ANIDULAFUNGIN [Concomitant]
     Active Substance: ANIDULAFUNGIN

REACTIONS (3)
  - Multiple organ dysfunction syndrome [None]
  - Systemic inflammatory response syndrome [None]
  - Off label use [None]
